FAERS Safety Report 20747258 (Version 2)
Quarter: 2024Q1

REPORT INFORMATION
  Report Type: Spontaneous
  Country: US (occurrence: US)
  Receive Date: 20220425
  Receipt Date: 20240105
  Transmission Date: 20240409
  Serious: No
  Sender: FDA-Public Use
  Company Number: US-SA-SAC20220419000137

PATIENT
  Age: 75 Year
  Sex: Female

DRUGS (3)
  1. KEVZARA [Suspect]
     Active Substance: SARILUMAB
     Indication: Rheumatoid arthritis
     Dosage: 200 MG, QOW
     Route: 058
     Dates: start: 20211007
  2. KEVZARA [Suspect]
     Active Substance: SARILUMAB
     Indication: Illness
  3. TYMLOS [Concomitant]
     Active Substance: ABALOPARATIDE
     Dosage: UNK

REACTIONS (2)
  - Dyspnoea [Not Recovered/Not Resolved]
  - Feeling abnormal [Unknown]

NARRATIVE: CASE EVENT DATE: 20220324
